FAERS Safety Report 5716455-6 (Version None)
Quarter: 2008Q2

REPORT INFORMATION
  Report Type: 
  Country: None (occurrence: None)
  Receive Date: 20080424
  Receipt Date: 20080103
  Transmission Date: 20081010
  Serious: Yes (Hospitalization)
  Sender: FDA-Public Use
  Company Number: US-ROCHE-559256

PATIENT
  Sex: Male
  Weight: 93 kg

DRUGS (4)
  1. ACCUTANE [Suspect]
     Indication: ACNE
     Route: 048
     Dates: start: 20071024, end: 20071209
  2. ACCUTANE [Suspect]
     Route: 048
     Dates: start: 20070924, end: 20071024
  3. INSULIN [Concomitant]
  4. ZYRTEC [Concomitant]

REACTIONS (1)
  - MYOCARDIAL INFARCTION [None]
